FAERS Safety Report 5379927-2 (Version None)
Quarter: 2007Q3

REPORT INFORMATION
  Report Type: 
  Country: None (occurrence: None)
  Receive Date: 20070706
  Receipt Date: 20070627
  Transmission Date: 20080115
  Serious: Yes (Life-Threatening, Hospitalization, Other)
  Sender: FDA-Public Use
  Company Number: PHBS2007IT11009

PATIENT
  Age: 36 Year
  Sex: Male

DRUGS (5)
  1. CLOZAPINE [Suspect]
     Indication: DEPRESSION
     Route: 065
  2. LITHIUM CARBONATE [Concomitant]
  3. CITALOPRAM HYDROBROMIDE [Concomitant]
  4. CLOMIPRAMINE HCL [Concomitant]
  5. LORAZEPAM [Concomitant]

REACTIONS (25)
  - AGRANULOCYTOSIS [None]
  - ALANINE AMINOTRANSFERASE INCREASED [None]
  - ANAEMIA [None]
  - APPLICATION SITE REACTION [None]
  - ASPARTATE AMINOTRANSFERASE INCREASED [None]
  - BACTERIAL TOXAEMIA [None]
  - BLOOD BILIRUBIN INCREASED [None]
  - BLOOD CREATININE INCREASED [None]
  - BLOOD FIBRINOGEN INCREASED [None]
  - C-REACTIVE PROTEIN INCREASED [None]
  - CHILLS [None]
  - FEBRILE NEUTROPENIA [None]
  - GAMMA-GLUTAMYLTRANSFERASE INCREASED [None]
  - HAEMOGLOBIN DECREASED [None]
  - HEPATIC ENZYME INCREASED [None]
  - HEPATOTOXICITY [None]
  - HYPERPYREXIA [None]
  - HYPOKALAEMIA [None]
  - LEUKOCYTOSIS [None]
  - LEUKOPENIA [None]
  - NEPHROPATHY TOXIC [None]
  - PRURITUS [None]
  - RASH MACULO-PAPULAR [None]
  - RED BLOOD CELL SEDIMENTATION RATE INCREASED [None]
  - SKIN EXFOLIATION [None]
